FAERS Safety Report 7540418-1 (Version None)
Quarter: 2011Q2

REPORT INFORMATION
  Report Type: 
  Country: None (occurrence: None)
  Receive Date: 20110610
  Receipt Date: 20110606
  Transmission Date: 20111010
  Serious: No
  Sender: FDA-Public Use
  Company Number: MX-ELI_LILLY_AND_COMPANY-MX201103005175

PATIENT
  Age: 28 Year
  Sex: Male

DRUGS (5)
  1. CIALIS [Suspect]
     Dosage: 5 MG, UNKNOWN
  2. COCAINE [Concomitant]
  3. ANTIDEPRESSANTS [Concomitant]
  4. ALCOHOL [Concomitant]
  5. CIALIS [Suspect]
     Indication: ERECTILE DYSFUNCTION
     Dosage: 20 MG, UNK
     Route: 065

REACTIONS (3)
  - XANTHOPSIA [None]
  - HYPOTENSION [None]
  - VISION BLURRED [None]
